FAERS Safety Report 7385806-1 (Version None)
Quarter: 2011Q1

REPORT INFORMATION
  Report Type: 
  Country: None (occurrence: None)
  Receive Date: 20110331
  Receipt Date: 20091122
  Transmission Date: 20110831
  Serious: Yes (Death, Hospitalization, Other)
  Sender: FDA-Public Use
  Company Number: US-BAYER-2011-006270

PATIENT
  Sex: Female

DRUGS (30)
  1. HUMAN RED BLOOD CELLS [Concomitant]
     Dosage: 2 U, UNK
     Dates: start: 20040203
  2. FENTANYL [Concomitant]
     Dosage: 1000 MCG, UNK
     Route: 042
     Dates: start: 20040203, end: 20040203
  3. MILRINONE [Concomitant]
     Dosage: 0.5 MCG/KG/MIN
     Route: 042
     Dates: start: 20040203
  4. CEFAZOLIN [Concomitant]
     Dosage: 1.5 G, UNK
     Route: 042
     Dates: start: 20040203
  5. TRASYLOL [Suspect]
     Indication: MITRAL VALVE REPLACEMENT
     Dosage: 200 ML, UNK
     Dates: start: 20040203, end: 20040203
  6. SEVELAMER [Concomitant]
     Dosage: 800 MG, TID
     Route: 048
     Dates: start: 20040202, end: 20040203
  7. VASOPRESSIN INJECTION [Concomitant]
     Dosage: 2 MCG, UNK
     Route: 042
     Dates: start: 20040203
  8. IMDUR [Concomitant]
     Dosage: 30 MG, QD
     Dates: start: 20040129, end: 20040203
  9. HEPARIN SODIUM [Concomitant]
     Dosage: 3500 U, UNK
     Route: 042
     Dates: start: 20040203, end: 20040203
  10. ISOFLURANE [Concomitant]
     Dosage: UNK
     Route: 042
     Dates: start: 20040203, end: 20040203
  11. BEXTRA [BUCINDOLOL HYDROCHLORIDE] [Concomitant]
  12. FLUCONAZOLE [Concomitant]
     Dosage: 200 MG, QD
     Route: 042
     Dates: start: 20040129
  13. INSULIN INJECTION [Concomitant]
     Dosage: 10 U, UNK
     Dates: start: 20040203, end: 20040203
  14. TRASYLOL [Suspect]
     Indication: TRICUSPID VALVE REPAIR
     Dosage: 1 ML, UNK
     Route: 042
     Dates: start: 20040203, end: 20040203
  15. SPIRONOLACTONE [Concomitant]
     Dosage: 12.5 MG,Q8HR
     Route: 048
     Dates: start: 20040129
  16. HEPARIN SODIUM [Concomitant]
     Dosage: 5000 U, UNK
     Dates: start: 20040129, end: 20040203
  17. NOREPINEPHRINE BITARTRATE [Concomitant]
     Dosage: UNK
     Route: 042
     Dates: start: 20040203
  18. PROTAMINE SULFATE [Concomitant]
     Dosage: 300 MG, UNK
     Route: 042
     Dates: start: 20040203, end: 20040203
  19. RENAGEL [Concomitant]
     Dosage: UNK
     Dates: start: 20040202
  20. LISINOPRIL [Concomitant]
  21. MORPHINE SULFATE [Concomitant]
     Dosage: 1-2 MG Q12HR
     Route: 042
     Dates: start: 20040129, end: 20040203
  22. BACTROBAN [Concomitant]
     Dosage: UNK
     Route: 061
     Dates: start: 20040129, end: 20040203
  23. TRASYLOL [Suspect]
     Dosage: 50 ML/HR, UNK
     Dates: start: 20040203, end: 20040203
  24. SODIUM BICARBONATE [Concomitant]
     Dosage: 650 MG, BID
     Route: 048
     Dates: start: 20040129
  25. HYDRALAZINE HCL [Concomitant]
     Dosage: 25 MG, Q6HR
     Route: 042
     Dates: start: 20040129
  26. ZAROXOLYN [Concomitant]
     Dosage: 2.5 MG, QD
     Route: 048
     Dates: start: 20040129, end: 20040203
  27. ALTACE [Concomitant]
     Dosage: 2.5 MG, QD
     Route: 048
     Dates: start: 20040129, end: 20040203
  28. LASIX [Concomitant]
     Dosage: 80 MG, Q12HR
     Route: 042
     Dates: start: 20040129, end: 20040203
  29. MUCOMYST [Concomitant]
     Dosage: 600 MG, BID
     Route: 048
     Dates: start: 20040129, end: 20040203
  30. CEFUROXIN [Concomitant]
     Dosage: 3 G, UNK
     Route: 042
     Dates: start: 20040203

REACTIONS (13)
  - DEATH [None]
  - MULTI-ORGAN FAILURE [None]
  - RENAL FAILURE [None]
  - STRESS [None]
  - FEAR [None]
  - PAIN [None]
  - UNEVALUABLE EVENT [None]
  - ANXIETY [None]
  - INJURY [None]
  - ANHEDONIA [None]
  - RENAL IMPAIRMENT [None]
  - RENAL INJURY [None]
  - EMOTIONAL DISTRESS [None]
